FAERS Safety Report 18767822 (Version 2)
Quarter: 2021Q1

REPORT INFORMATION
  Report Type: Spontaneous
  Country: US (occurrence: US)
  Receive Date: 20210121
  Receipt Date: 20210216
  Transmission Date: 20210419
  Serious: Yes (Other)
  Sender: FDA-Public Use
  Company Number: US-SA-2021SA017684

PATIENT
  Age: 54 Year
  Sex: Female

DRUGS (1)
  1. DUPIXENT [Suspect]
     Active Substance: DUPILUMAB
     Indication: NASAL POLYPS
     Dosage: UNK
     Route: 058
     Dates: start: 20201124, end: 20201224

REACTIONS (11)
  - Rash [Unknown]
  - Injection site cellulitis [Unknown]
  - Cellulitis [Unknown]
  - Erythema [Unknown]
  - Pruritus [Not Recovered/Not Resolved]
  - Peripheral swelling [Unknown]
  - Injection site erythema [Unknown]
  - Rash vesicular [Not Recovered/Not Resolved]
  - Skin exfoliation [Unknown]
  - Thermal burn [Unknown]
  - Injection site mass [Unknown]

NARRATIVE: CASE EVENT DATE: 20201124
